FAERS Safety Report 10873786 (Version 3)
Quarter: 2015Q1

REPORT INFORMATION
  Report Type: Spontaneous
  Country: JP (occurrence: JP)
  Receive Date: 20150227
  Receipt Date: 20150325
  Transmission Date: 20150721
  Serious: Yes (Hospitalization, Other)
  Sender: FDA-Public Use
  Company Number: JP-ASTRAZENECA-2015SE07847

PATIENT
  Age: 7668 Day
  Sex: Female
  Weight: 34 kg

DRUGS (14)
  1. VOLTAREN [Concomitant]
     Active Substance: DICLOFENAC SODIUM
     Indication: POSTOPERATIVE ANALGESIA
     Route: 054
     Dates: start: 20150122
  2. ANAPEINE [Suspect]
     Active Substance: ROPIVACAINE HYDROCHLORIDE
     Indication: NERVE BLOCK
     Dosage: SRENGHT: 2 MG/ML, 4 MG - 12 MG/H
     Route: 053
     Dates: start: 20150113, end: 20150122
  3. SEPAMIT-R [Concomitant]
     Indication: HYPERTENSION
     Route: 048
     Dates: start: 20150122
  4. SEPAMIT-R [Concomitant]
     Indication: BLOOD PRESSURE MANAGEMENT
     Route: 048
     Dates: start: 20150122
  5. REBAMIPIDE [Concomitant]
     Active Substance: REBAMIPIDE
     Indication: GASTRITIS PROPHYLAXIS
     Route: 048
     Dates: start: 20150114
  6. ACICLOVIR [Concomitant]
     Active Substance: ACYCLOVIR
     Indication: IMMUNOSUPPRESSION
     Route: 048
     Dates: start: 20150112
  7. NEUROTROPIN [Concomitant]
     Active Substance: NEUROTROPIN
     Indication: POSTOPERATIVE ANALGESIA
     Route: 048
     Dates: start: 20150122, end: 20150128
  8. LYRICA [Concomitant]
     Active Substance: PREGABALIN
     Indication: POSTOPERATIVE ANALGESIA
     Route: 048
     Dates: start: 20150122
  9. URONASE [Concomitant]
     Indication: THROMBOLYSIS
     Dosage: 1 DF, CONTINUOUS ADMINISTRATION
     Route: 042
     Dates: start: 20150113, end: 20150120
  10. GLIVEC [Concomitant]
     Active Substance: IMATINIB MESYLATE
     Indication: CHRONIC GRAFT VERSUS HOST DISEASE
     Dosage: DOSE UNKNOWN
     Route: 065
     Dates: start: 201203
  11. METHYCOBAL [Concomitant]
     Active Substance: METHYLCOBALAMIN
     Indication: POSTOPERATIVE ANALGESIA
     Route: 048
     Dates: start: 20150122, end: 20150128
  12. CEFAZOLIN NA [Concomitant]
     Indication: INFECTION PROPHYLAXIS
     Route: 042
     Dates: start: 20150113, end: 20150120
  13. TANDETRON [Concomitant]
     Indication: THROMBOLYSIS
     Route: 042
     Dates: start: 20150113, end: 20150117
  14. LOXOPROFEN [Concomitant]
     Active Substance: LOXOPROFEN
     Indication: POSTOPERATIVE ANALGESIA
     Route: 048
     Dates: start: 20150114

REACTIONS (1)
  - Posterior reversible encephalopathy syndrome [Not Recovered/Not Resolved]

NARRATIVE: CASE EVENT DATE: 20150122
